FAERS Safety Report 8028869-2 (Version None)
Quarter: 2012Q1

REPORT INFORMATION
  Report Type: 
  Country: None (occurrence: None)
  Receive Date: 20120106
  Receipt Date: 20120104
  Transmission Date: 20120608
  Serious: Yes (Life-Threatening, Hospitalization)
  Sender: FDA-Public Use
  Company Number: US-GLAXOSMITHKLINE-A0955281A

PATIENT
  Age: 82 Year
  Sex: Female
  Weight: 72.7 kg

DRUGS (10)
  1. PROMACTA [Suspect]
     Indication: PRODUCT USED FOR UNKNOWN INDICATION
     Dosage: 50MG TWICE PER DAY
     Route: 048
     Dates: start: 20111121
  2. CLOTRIMAZOL [Concomitant]
  3. PANTOPRAZOLE [Concomitant]
  4. LOVENOX [Concomitant]
  5. SYNTHROID [Concomitant]
  6. METOPROLOL SUCCINATE [Concomitant]
  7. PROTONIX [Concomitant]
  8. PREDNISONE TAB [Concomitant]
  9. CLOTRIMAZOLE [Concomitant]
  10. LEVOTHYROXINE SODIUM [Concomitant]

REACTIONS (7)
  - ERYTHEMA [None]
  - ANKLE FRACTURE [None]
  - FALL [None]
  - DEEP VEIN THROMBOSIS [None]
  - RASH ERYTHEMATOUS [None]
  - PALMAR-PLANTAR ERYTHRODYSAESTHESIA SYNDROME [None]
  - PULMONARY EMBOLISM [None]
